FAERS Safety Report 9326187 (Version 1)
Quarter: 2013Q2

REPORT INFORMATION
  Report Type: Spontaneous
  Country: US (occurrence: None)
  Receive Date: 20130603
  Receipt Date: 20130603
  Transmission Date: 20140414
  Serious: Yes (Death)
  Sender: FDA-Public Use
  Company Number: None

PATIENT
  Age: 62 Year
  Sex: Male
  Weight: 115 kg

DRUGS (2)
  1. PEGINTRON [Suspect]
     Indication: HEPATITIS C
  2. RIBAVIRIN [Concomitant]

REACTIONS (2)
  - Colitis [None]
  - Respiratory failure [None]
